FAERS Safety Report 7135428-2 (Version None)
Quarter: 2010Q4

REPORT INFORMATION
  Report Type: 
  Country: None (occurrence: None)
  Receive Date: 20101203
  Receipt Date: 20101122
  Transmission Date: 20110411
  Serious: Yes (Death)
  Sender: FDA-Public Use
  Company Number: US-ENDO PHARMACEUTICALS INC.-OPIR20100048

PATIENT
  Age: 47 Year
  Sex: Male

DRUGS (2)
  1. OPANA [Suspect]
     Dosage: UNK
     Route: 048
  2. ETHANOL [Suspect]
     Dosage: UNK
     Route: 048

REACTIONS (2)
  - ACCIDENTAL OVERDOSE [None]
  - DRUG TOXICITY [None]
